FAERS Safety Report 6013652-X (Version None)
Quarter: 2008Q4

REPORT INFORMATION
  Report Type: 
  Country: None (occurrence: None)
  Receive Date: 20081219
  Receipt Date: 20081209
  Transmission Date: 20090506
  Serious: Yes (Death, Hospitalization)
  Sender: FDA-Public Use
  Company Number: GR-ROCHE-602304

PATIENT
  Age: 73 Year
  Sex: Male

DRUGS (5)
  1. CAPECITABINE [Suspect]
     Indication: COLORECTAL CANCER
     Dosage: GIVEN ON DAY 1 TO DAY 14 OF EVERY 21 DAY CYCLE
     Route: 065
  2. BEVACIZUMAB [Suspect]
     Indication: COLORECTAL CANCER
     Dosage: GIVEN ON DAY 1 OF EACH 21 DAY CYCLE
     Route: 065
  3. IRINOTECAN HYDROCHLORIDE [Suspect]
     Indication: COLORECTAL CANCER
     Dosage: GIVEN ON DAY 1
     Route: 065
  4. DEXAMETHASONE [Concomitant]
  5. ATROPINE [Concomitant]

REACTIONS (6)
  - DEATH [None]
  - DEHYDRATION [None]
  - DIARRHOEA [None]
  - ELECTROLYTE IMBALANCE [None]
  - RENAL FAILURE ACUTE [None]
  - VOMITING [None]
